FAERS Safety Report 6998912-8 (Version None)
Quarter: 2010Q3

REPORT INFORMATION
  Report Type: 
  Country: None (occurrence: None)
  Receive Date: 20100920
  Receipt Date: 20100604
  Transmission Date: 20110219
  Serious: No
  Sender: FDA-Public Use
  Company Number: US-ASTRAZENECA-2010SE27893

PATIENT
  Age: 20490 Day
  Sex: Female

DRUGS (8)
  1. SEROQUEL [Suspect]
     Route: 048
     Dates: start: 20001020
  2. BUSPAR [Concomitant]
     Dates: start: 20001020
  3. IBUPROFEN [Concomitant]
     Dates: start: 20001127
  4. TRAZODONE HCL [Concomitant]
     Dates: start: 20001127
  5. ACETAMINOPHEN [Concomitant]
     Dates: start: 20001127
  6. PROZAC [Concomitant]
     Dates: start: 20001127
  7. PRILOSEC [Concomitant]
     Dates: start: 20001127
  8. CELEBREX [Concomitant]
     Dates: start: 20040325

REACTIONS (3)
  - DEPRESSION [None]
  - GASTROOESOPHAGEAL REFLUX DISEASE [None]
  - OVARIAN MASS [None]
